FAERS Safety Report 9445800 (Version 1)
Quarter: 2013Q3

REPORT INFORMATION
  Report Type: Spontaneous
  Country: RS (occurrence: RS)
  Receive Date: 20130807
  Receipt Date: 20130807
  Transmission Date: 20140515
  Serious: Yes (Other)
  Sender: FDA-Public Use
  Company Number: RS-BAYER-2013-092156

PATIENT
  Age: 80 Year
  Sex: Female
  Weight: 66 kg

DRUGS (3)
  1. ACETYLSALICYLIC ACID({=100 MG) [Suspect]
     Indication: ACUTE MYOCARDIAL INFARCTION
     Dosage: 100 MG, UNK
  2. CLEXANE [Suspect]
     Indication: ACUTE MYOCARDIAL INFARCTION
     Dosage: 60 MG (0.6 ML), BID
     Route: 058
  3. CLOPIDOGREL [Suspect]
     Indication: ACUTE MYOCARDIAL INFARCTION
     Dosage: 75 MG, UNK

REACTIONS (4)
  - Arterial injury [None]
  - Arterial haemorrhage [None]
  - Abdominal wall haematoma [Recovered/Resolved]
  - Haemoglobin decreased [None]
